FAERS Safety Report 19660181 (Version 1)
Quarter: 2021Q3

REPORT INFORMATION
  Report Type: Spontaneous
  Country: AE (occurrence: AE)
  Receive Date: 20210805
  Receipt Date: 20210805
  Transmission Date: 20211014
  Serious: Yes (Death, Life-Threatening, Hospitalization)
  Sender: FDA-Public Use
  Company Number: AE-STRIDES ARCOLAB LIMITED-2021SP025915

PATIENT
  Age: 37 Year
  Sex: Male

DRUGS (5)
  1. DOXORUBICIN [Suspect]
     Active Substance: DOXORUBICIN
     Indication: HEPATOSPLENIC T-CELL LYMPHOMA
     Dosage: UNK (CHOP THERAPY)
     Route: 065
  2. CYCLOPHOSPHAMIDE. [Suspect]
     Active Substance: CYCLOPHOSPHAMIDE
     Indication: HEPATOSPLENIC T-CELL LYMPHOMA
     Dosage: UNK (CHOP THERAPY)
     Route: 065
  3. VINCRISTINE [Suspect]
     Active Substance: VINCRISTINE
     Indication: HEPATOSPLENIC T-CELL LYMPHOMA
     Dosage: UNK (CHOP THERAPY)
     Route: 065
  4. DEXAMETHASONE. [Concomitant]
     Active Substance: DEXAMETHASONE
     Indication: HEPATOSPLENIC T-CELL LYMPHOMA
     Dosage: UNK (AS PER HLH PROTOCOL 2004 TO REDUCE THE TUMOUR BURDEN)
     Route: 065
  5. PREDNISOLONE. [Suspect]
     Active Substance: PREDNISOLONE
     Indication: HEPATOSPLENIC T-CELL LYMPHOMA
     Dosage: UNK (CHOP THERAPY)
     Route: 065

REACTIONS (1)
  - Drug ineffective [Fatal]
